FAERS Safety Report 7241788-4 (Version None)
Quarter: 2011Q1

REPORT INFORMATION
  Report Type: 
  Country: None (occurrence: None)
  Receive Date: 20110124
  Receipt Date: 20110114
  Transmission Date: 20110831
  Serious: Yes (Life-Threatening)
  Sender: FDA-Public Use
  Company Number: JP-ASTRAZENECA-2011SE03384

PATIENT
  Age: 10664 Day
  Sex: Female

DRUGS (6)
  1. TAHOR [Concomitant]
     Indication: PRODUCT USED FOR UNKNOWN INDICATION
     Route: 048
  2. EFFEXOR [Concomitant]
     Indication: DEPRESSION
     Route: 048
  3. APIDRA [Concomitant]
     Indication: TYPE 1 DIABETES MELLITUS
     Route: 065
  4. KENZEN [Suspect]
     Indication: HYPERTENSION
     Route: 048
  5. XANAX [Concomitant]
     Indication: DEPRESSION
     Route: 048
  6. LANTUS [Concomitant]
     Indication: TYPE 1 DIABETES MELLITUS
     Route: 065

REACTIONS (3)
  - DRUG EXPOSURE DURING PREGNANCY [None]
  - ABORTION INDUCED [None]
  - RENAL FAILURE [None]
